FAERS Safety Report 9998499 (Version 3)
Quarter: 2014Q2

REPORT INFORMATION
  Report Type: Report from Study
  Country: FR (occurrence: FR)
  Receive Date: 20140312
  Receipt Date: 20140505
  Transmission Date: 20141212
  Serious: Yes (Other)
  Sender: FDA-Public Use
  Company Number: FR-ACTELION-A-CH2011-47944

PATIENT
  Age: 8 Year
  Sex: Female

DRUGS (2)
  1. ZAVESCA [Suspect]
     Indication: NIEMANN-PICK DISEASE
     Dosage: 200 MG, BID
     Route: 048
     Dates: end: 201009
  2. ZAVESCA [Suspect]
     Dosage: 350 MG, QD
     Route: 048
     Dates: start: 201003

REACTIONS (4)
  - Diarrhoea [Unknown]
  - Weight decreased [Unknown]
  - Convulsion [Unknown]
  - Dysgeusia [Unknown]
